FAERS Safety Report 9271748 (Version 2)
Quarter: 2013Q2

REPORT INFORMATION
  Report Type: Report from Study
  Country: DE (occurrence: DE)
  Receive Date: 20130506
  Receipt Date: 20130612
  Transmission Date: 20140414
  Serious: Yes (Hospitalization)
  Sender: FDA-Public Use
  Company Number: DE-SHIRE-ALL1-2013-02785

PATIENT
  Age: 20 Year
  Sex: Male
  Weight: 30.7 kg

DRUGS (4)
  1. IDURSULFASE [Suspect]
     Indication: MUCOPOLYSACCHARIDOSIS II
     Dosage: 16.8 MG, 1X/WEEK
     Dates: start: 20070109
  2. IDURSULFASE [Suspect]
     Dosage: 16.2 MG, 1X/WEEK
     Route: 041
     Dates: start: 20050510
  3. IDURSULFASE [Suspect]
     Dosage: 15.35 MG, 1X/WEEK (0.5MG/KG)
     Route: 041
     Dates: start: 20040109
  4. RAMIPRIL [Concomitant]
     Indication: CARDIOVASCULAR DISORDER
     Dosage: 2.5 MG, 1X/DAY:QD
     Route: 048
     Dates: start: 20110601

REACTIONS (1)
  - Cellulitis orbital [Recovered/Resolved]
